FAERS Safety Report 15225910 (Version 1)
Quarter: 2018Q3

REPORT INFORMATION
  Report Type: Spontaneous
  Country: US (occurrence: US)
  Receive Date: 20180801
  Receipt Date: 20180801
  Transmission Date: 20181010
  Serious: No
  Sender: FDA-Public Use
  Company Number: US-PFIZER INC-2018307724

PATIENT
  Age: 39 Year
  Sex: Female

DRUGS (1)
  1. GENOTROPIN MQ [Suspect]
     Active Substance: SOMATROPIN
     Dosage: 0.6 MG, DAILY
     Dates: start: 2011

REACTIONS (5)
  - Blood thyroid stimulating hormone decreased [Unknown]
  - Cortisol increased [Unknown]
  - Memory impairment [Unknown]
  - Cognitive disorder [Unknown]
  - Feeling abnormal [Unknown]
